FAERS Safety Report 6955246-5 (Version None)
Quarter: 2010Q3

REPORT INFORMATION
  Report Type: 
  Country: None (occurrence: None)
  Receive Date: 20100830
  Receipt Date: 20100824
  Transmission Date: 20110219
  Serious: Yes (Other)
  Sender: FDA-Public Use
  Company Number: JP-B.I. PHARMACEUTICALS,INC./RIDGEFIELD-2010-BP-09587NB

PATIENT
  Age: 84 Year
  Sex: Female

DRUGS (4)
  1. MICOMBI COMBINATION [Suspect]
     Dosage: TELMISARTAN 40 MG/HYDROCHLOROTHIAZIDE 12.5 MG
  2. AMLODIPINE BESYLATE [Suspect]
     Dosage: 1DF
     Route: 048
  3. UBIRON [Suspect]
     Dosage: 6DF
     Route: 048
  4. NEO-MINOPHAGEN C [Suspect]

REACTIONS (1)
  - PANCYTOPENIA [None]
